FAERS Safety Report 15475195 (Version 1)
Quarter: 2018Q4

REPORT INFORMATION
  Report Type: Spontaneous
  Country: AU (occurrence: AU)
  Receive Date: 20181008
  Receipt Date: 20181008
  Transmission Date: 20190205
  Serious: Yes (Other)
  Sender: FDA-Public Use
  Company Number: AU-IMPAX LABORATORIES, INC-2018-IPXL-03267

PATIENT
  Sex: Female

DRUGS (4)
  1. RIFAMPICIN [Concomitant]
     Active Substance: RIFAMPIN
     Indication: CHOLESTASIS OF PREGNANCY
     Dosage: UNK
     Route: 065
  2. URSODIOL. [Suspect]
     Active Substance: URSODIOL
     Indication: CHOLESTASIS OF PREGNANCY
     Dosage: UNK
     Route: 065
  3. ACTIVATED CHARCOAL. [Concomitant]
     Active Substance: ACTIVATED CHARCOAL
     Indication: PRODUCT USED FOR UNKNOWN INDICATION
     Dosage: UNK
     Route: 048
  4. VITAMIN K [Concomitant]
     Active Substance: PHYTONADIONE
     Indication: PRODUCT USED FOR UNKNOWN INDICATION
     Dosage: UNK
     Route: 048

REACTIONS (4)
  - Maternal exposure during pregnancy [Unknown]
  - Haemorrhage in pregnancy [Unknown]
  - Meconium in amniotic fluid [Unknown]
  - Drug ineffective [Unknown]
